FAERS Safety Report 9670765 (Version 1)
Quarter: 2013Q4

REPORT INFORMATION
  Report Type: Spontaneous
  Country: BR (occurrence: BR)
  Receive Date: 20131106
  Receipt Date: 20131106
  Transmission Date: 20140711
  Serious: Yes (Other)
  Sender: FDA-Public Use
  Company Number: BR-SA-2013SA111195

PATIENT
  Sex: Female

DRUGS (2)
  1. LANTUS [Suspect]
     Indication: DIABETES MELLITUS
     Dosage: STARTED FEW YEARS AGO
     Route: 058
  2. CLIKSTAR [Concomitant]
     Indication: DEVICE THERAPY
     Route: 058

REACTIONS (1)
  - Bedridden [Not Recovered/Not Resolved]
